FAERS Safety Report 4287194-6 (Version None)
Quarter: 2004Q1

REPORT INFORMATION
  Report Type: 
  Country: None (occurrence: None)
  Receive Date: 20040126
  Receipt Date: 20030822
  Transmission Date: 20041129
  Serious: No
  Sender: FDA-Public Use
  Company Number: USA030845228

PATIENT
  Age: 77 Year
  Sex: Female
  Weight: 67 kg

DRUGS (7)
  1. FORTEO [Suspect]
     Dates: start: 20030821
  2. EXTRA STRENGTH TYLENOL [Concomitant]
  3. VICOPROFEN [Concomitant]
  4. LOTREL [Concomitant]
  5. VITAMIN E [Concomitant]
  6. VITAMIN A [Concomitant]
  7. VITAMIN C [Concomitant]

REACTIONS (1)
  - OEDEMA PERIPHERAL [None]
